FAERS Safety Report 15291227 (Version 1)
Quarter: 2018Q3

REPORT INFORMATION
  Report Type: Spontaneous
  Country: US (occurrence: CA)
  Receive Date: 20180817
  Receipt Date: 20180817
  Transmission Date: 20181010
  Serious: Yes (Hospitalization)
  Sender: FDA-Public Use
  Company Number: US-SUNOVION-2018SUN003173

PATIENT
  Age: 61 Year
  Sex: Female

DRUGS (3)
  1. GLYCOPYRROLATE. [Suspect]
     Active Substance: GLYCOPYRROLATE
     Indication: PRODUCT USED FOR UNKNOWN INDICATION
     Dosage: UNK
     Route: 055
  2. SALBUTAMOL [Suspect]
     Active Substance: ALBUTEROL
     Indication: PRODUCT USED FOR UNKNOWN INDICATION
     Dosage: UNK
     Route: 065
  3. ZENHALE [Suspect]
     Active Substance: FORMOTEROL FUMARATE\MOMETASONE FUROATE
     Indication: PRODUCT USED FOR UNKNOWN INDICATION
     Dosage: 4 DF, UNK
     Route: 065

REACTIONS (11)
  - Bronchitis [Unknown]
  - Sneezing [Unknown]
  - Chest discomfort [Unknown]
  - Cough [Unknown]
  - Stress [Unknown]
  - Blood count abnormal [Unknown]
  - Productive cough [Unknown]
  - Dyspnoea [Unknown]
  - Nodule [Unknown]
  - Pulmonary mass [Unknown]
  - Respiratory symptom [Unknown]
